FAERS Safety Report 8279354-4 (Version None)
Quarter: 2012Q2

REPORT INFORMATION
  Report Type: 
  Country: None (occurrence: None)
  Receive Date: 20120412
  Receipt Date: 20120203
  Transmission Date: 20120825
  Serious: No
  Sender: FDA-Public Use
  Company Number: US-ASTRAZENECA-2012SE07940

PATIENT
  Age: 50 Year
  Sex: Female

DRUGS (2)
  1. NEXIUM [Suspect]
     Route: 048
  2. PROTONIX [Concomitant]

REACTIONS (6)
  - FLATULENCE [None]
  - DRUG DOSE OMISSION [None]
  - FEELING ABNORMAL [None]
  - APHAGIA [None]
  - GASTROOESOPHAGEAL REFLUX DISEASE [None]
  - THERAPEUTIC RESPONSE UNEXPECTED [None]
